FAERS Safety Report 12527676 (Version 2)
Quarter: 2016Q3

REPORT INFORMATION
  Report Type: Spontaneous
  Country: IL (occurrence: IL)
  Receive Date: 20160705
  Receipt Date: 20160719
  Transmission Date: 20161109
  Serious: Yes (Other)
  Sender: FDA-Public Use
  Company Number: PHHY2016IL088320

PATIENT
  Age: 38 Year
  Sex: Female

DRUGS (4)
  1. XGEVA [Suspect]
     Active Substance: DENOSUMAB
     Indication: PRODUCT USED FOR UNKNOWN INDICATION
     Dosage: 120 MG, QMO
     Route: 058
     Dates: start: 201501
  2. PALBOCICLIB [Suspect]
     Active Substance: PALBOCICLIB
     Dosage: 100 MG, QD
     Route: 065
     Dates: end: 201605
  3. LETROZOLE. [Suspect]
     Active Substance: LETROZOLE
     Indication: BREAST CANCER METASTATIC
     Dosage: 2.5 MG, QD
     Route: 065
     Dates: start: 201501, end: 2016
  4. PALBOCICLIB [Suspect]
     Active Substance: PALBOCICLIB
     Indication: PRODUCT USED FOR UNKNOWN INDICATION
     Dosage: UNK
     Route: 065
     Dates: start: 20150226, end: 2016

REACTIONS (10)
  - Vomiting [Unknown]
  - Quality of life decreased [Unknown]
  - Neutropenia [Unknown]
  - Metastatic lymphoma [Unknown]
  - Lymphadenopathy [Unknown]
  - Metastases to meninges [Unknown]
  - Headache [Unknown]
  - Carbohydrate antigen 15-3 increased [Unknown]
  - Stomatitis [Unknown]
  - Eating disorder [Unknown]

NARRATIVE: CASE EVENT DATE: 2016
